FAERS Safety Report 9780359 (Version 2)
Quarter: 2014Q1

REPORT INFORMATION
  Report Type: Report from Study
  Country: US (occurrence: US)
  Receive Date: 20131224
  Receipt Date: 20140113
  Transmission Date: 20141002
  Serious: Yes (Hospitalization)
  Sender: FDA-Public Use
  Company Number: US-ROCHE-1323436

PATIENT
  Sex: Male

DRUGS (12)
  1. LUCENTIS [Suspect]
     Indication: AGE-RELATED MACULAR DEGENERATION
     Dosage: RIGHT EYE
     Route: 050
  2. KLONOPIN [Suspect]
     Indication: PARKINSON^S DISEASE
     Dosage: BEDTIME
     Route: 065
  3. ALLOPURINOL [Concomitant]
     Indication: RENAL DISORDER
  4. EYLEA [Concomitant]
     Route: 065
  5. SINEMET [Concomitant]
     Indication: PARKINSON^S DISEASE
  6. FINASTERIDE [Concomitant]
     Indication: PROSTATIC DISORDER
  7. NORTRIPTYLINE [Concomitant]
     Indication: PARKINSON^S DISEASE
  8. BENICAR [Concomitant]
  9. NEXIUM [Concomitant]
  10. POTASSIUM CITRATE [Concomitant]
  11. ZOCOR [Concomitant]
     Indication: BLOOD CHOLESTEROL DECREASED
  12. ASPIRIN [Concomitant]
     Route: 065

REACTIONS (3)
  - Transient ischaemic attack [Recovered/Resolved]
  - Ocular hyperaemia [Recovered/Resolved]
  - Eye irritation [Recovered/Resolved]
